FAERS Safety Report 14237263 (Version 1)
Quarter: 2017Q4

REPORT INFORMATION
  Report Type: Report from Study
  Country: US (occurrence: US)
  Receive Date: 20171129
  Receipt Date: 20171129
  Transmission Date: 20180321
  Serious: Yes (Other)
  Sender: FDA-Public Use
  Company Number: US-JNJFOC-20171133819

PATIENT
  Age: 7 Year
  Sex: Male
  Weight: 40.1 kg

DRUGS (2)
  1. REMICADE [Suspect]
     Active Substance: INFLIXIMAB
     Indication: CROHN^S DISEASE
     Route: 042
     Dates: start: 20170728
  2. REMICADE [Suspect]
     Active Substance: INFLIXIMAB
     Indication: CROHN^S DISEASE
     Route: 042

REACTIONS (4)
  - Hand fracture [Unknown]
  - Adenoidal hypertrophy [Unknown]
  - Atypical mycobacterial infection [Unknown]
  - Rhinitis [Unknown]

NARRATIVE: CASE EVENT DATE: 20111101
